FAERS Safety Report 10013494 (Version 1)
Quarter: 2014Q1

REPORT INFORMATION
  Report Type: Spontaneous
  Country: US (occurrence: US)
  Receive Date: 20140314
  Receipt Date: 20140314
  Transmission Date: 20141002
  Serious: Yes (Death, Hospitalization, Other)
  Sender: FDA-Public Use
  Company Number: US-ASTRAZENECA-2014SE17440

PATIENT
  Sex: Female

DRUGS (3)
  1. BRILINTA [Suspect]
     Indication: ACUTE CORONARY SYNDROME
     Route: 048
     Dates: start: 2014, end: 2014
  2. ASPIRIN [Concomitant]
  3. OTHER MEDICATIONS [Concomitant]

REACTIONS (2)
  - Death [Fatal]
  - Haemorrhage intracranial [Recovered/Resolved]
